FAERS Safety Report 6127608-X (Version None)
Quarter: 2009Q1

REPORT INFORMATION
  Report Type: 
  Country: None (occurrence: None)
  Receive Date: 20090319
  Receipt Date: 20090319
  Transmission Date: 20090719
  Serious: Yes (Other)
  Sender: FDA-Public Use
  Company Number: None

PATIENT
  Age: 62 Year
  Sex: Female
  Weight: 63.5036 kg

DRUGS (1)
  1. TEMAZEPAM [Suspect]
     Indication: SLEEP DISORDER
     Dosage: 30 MG H.S., P.R.N. PO
     Route: 048
     Dates: start: 20090313, end: 20090314

REACTIONS (4)
  - HEART RATE INCREASED [None]
  - PARAESTHESIA ORAL [None]
  - PRODUCT QUALITY ISSUE [None]
  - SWOLLEN TONGUE [None]
